FAERS Safety Report 16991205 (Version 1)
Quarter: 2019Q4

REPORT INFORMATION
  Report Type: Report from Study
  Country: GB (occurrence: GB)
  Receive Date: 20191104
  Receipt Date: 20191104
  Transmission Date: 20200122
  Serious: Yes (Other)
  Sender: FDA-Public Use
  Company Number: NVSC2019GB023276

PATIENT
  Sex: Male

DRUGS (1)
  1. COSENTYX [Suspect]
     Active Substance: SECUKINUMAB
     Indication: PSORIATIC ARTHROPATHY
     Dosage: 300 MG, QMO (COSENTYX PEN) (BATCH NUMBER NOT REPORTED)
     Route: 065
     Dates: start: 20190802

REACTIONS (2)
  - Lower respiratory tract infection [Unknown]
  - Malaise [Unknown]
